FAERS Safety Report 25551329 (Version 1)
Quarter: 2025Q3

REPORT INFORMATION
  Report Type: Report from Study
  Country: US (occurrence: US)
  Receive Date: 20250714
  Receipt Date: 20250714
  Transmission Date: 20251021
  Serious: Yes (Other)
  Sender: DAIICHI
  Company Number: US-DSJP-DS-2025-151797-US

PATIENT
  Age: 78 Year
  Sex: Male

DRUGS (1)
  1. ENHERTU [Suspect]
     Active Substance: FAM-TRASTUZUMAB DERUXTECAN-NXKI
     Indication: Non-small cell lung cancer metastatic
     Route: 065
     Dates: start: 20210220, end: 20210301

REACTIONS (2)
  - Cardiotoxicity [Recovered/Resolved]
  - Off label use [Recovered/Resolved]
